FAERS Safety Report 23985300 (Version 1)
Quarter: 2024Q2

REPORT INFORMATION
  Report Type: Spontaneous
  Country: CN (occurrence: CN)
  Receive Date: 20240618
  Receipt Date: 20240618
  Transmission Date: 20240715
  Serious: Yes (Other)
  Sender: FDA-Public Use
  Company Number: CN-BAYER-2024A087079

PATIENT
  Age: 28 Year
  Sex: Female
  Weight: 61 kg

DRUGS (2)
  1. KERENDIA [Suspect]
     Active Substance: FINERENONE
     Indication: Diabetic nephropathy
     Dosage: 10 MG, QD
     Route: 048
     Dates: start: 20240531, end: 20240605
  2. KERENDIA [Suspect]
     Active Substance: FINERENONE
     Indication: Chronic kidney disease

REACTIONS (1)
  - Renal impairment [Recovering/Resolving]

NARRATIVE: CASE EVENT DATE: 20240605
